FAERS Safety Report 9757898 (Version 4)
Quarter: 2016Q2

REPORT INFORMATION
  Report Type: Report from Study
  Country: US (occurrence: US)
  Receive Date: 20131216
  Receipt Date: 20160505
  Transmission Date: 20160815
  Serious: Yes (Other)
  Sender: FDA-Public Use
  Company Number: US-ROCHE-1264798

PATIENT
  Age: 55 Year
  Sex: Female

DRUGS (22)
  1. EFFEXOR [Concomitant]
     Active Substance: VENLAFAXINE HYDROCHLORIDE
     Indication: DEPRESSION
  2. LISINOPRIL/HCTZ [Concomitant]
     Active Substance: HYDROCHLOROTHIAZIDE\LISINOPRIL
     Indication: HYPERTENSION
     Route: 048
  3. DIAZEPAM. [Concomitant]
     Active Substance: DIAZEPAM
     Dosage: ONE HALF
     Route: 065
  4. TROPICAMIDE. [Concomitant]
     Active Substance: TROPICAMIDE
     Route: 065
  5. METFORMIN [Concomitant]
     Active Substance: METFORMIN HYDROCHLORIDE
     Indication: DIABETES MELLITUS
     Dosage: WITH AM AND PM MEALS
     Route: 048
  6. LUCENTIS [Suspect]
     Active Substance: RANIBIZUMAB
     Indication: NEOVASCULAR AGE-RELATED MACULAR DEGENERATION
  7. EFFEXOR [Concomitant]
     Active Substance: VENLAFAXINE HYDROCHLORIDE
     Indication: BIPOLAR DISORDER
  8. ZOLOFT [Concomitant]
     Active Substance: SERTRALINE HYDROCHLORIDE
     Indication: ANXIETY
  9. LUCENTIS [Suspect]
     Active Substance: RANIBIZUMAB
     Indication: NEOVASCULAR AGE-RELATED MACULAR DEGENERATION
     Dosage: IN LEFT EYE. DATE OF MOST RECENT INJECTION :07/JUN/2013.
     Route: 050
     Dates: start: 20130129
  10. ASA [Concomitant]
     Active Substance: ASPIRIN
     Route: 065
  11. LUCENTIS [Suspect]
     Active Substance: RANIBIZUMAB
     Indication: NEOVASCULAR AGE-RELATED MACULAR DEGENERATION
     Route: 031
     Dates: start: 20140117
  12. PROZAC [Concomitant]
     Active Substance: FLUOXETINE HYDROCHLORIDE
     Indication: BIPOLAR DISORDER
  13. AVASTIN [Suspect]
     Active Substance: BEVACIZUMAB
     Indication: NEOVASCULAR AGE-RELATED MACULAR DEGENERATION
  14. CELEXA [Concomitant]
     Active Substance: CITALOPRAM HYDROBROMIDE
  15. METFORMIN [Concomitant]
     Active Substance: METFORMIN HYDROCHLORIDE
     Route: 065
  16. CHANTIX [Concomitant]
     Active Substance: VARENICLINE TARTRATE
     Dosage: 1 TABLET WITH GLASS OF WATER AFTER MEALS
     Route: 048
  17. PROZAC [Concomitant]
     Active Substance: FLUOXETINE HYDROCHLORIDE
     Indication: DEPRESSION
  18. PHENYLEPHRINE [Concomitant]
     Active Substance: PHENYLEPHRINE\PHENYLEPHRINE HYDROCHLORIDE
     Route: 065
  19. LUCENTIS [Suspect]
     Active Substance: RANIBIZUMAB
     Indication: MACULAR DEGENERATION
  20. AVASTIN [Suspect]
     Active Substance: BEVACIZUMAB
     Indication: NEOVASCULAR AGE-RELATED MACULAR DEGENERATION
     Dosage: LEFT EYE, START JUNE OR JULY FOR 3 TREATMENTS
     Route: 050
     Dates: start: 2011, end: 2011
  21. LIPITOR [Concomitant]
     Active Substance: ATORVASTATIN CALCIUM
     Route: 048
  22. ZOLOFT [Concomitant]
     Active Substance: SERTRALINE HYDROCHLORIDE
     Indication: DEPRESSION
     Route: 065
     Dates: start: 201311

REACTIONS (46)
  - Headache [Unknown]
  - Eye disorder [Recovered/Resolved]
  - Vision blurred [Recovered/Resolved]
  - Eye pain [Not Recovered/Not Resolved]
  - Pain [Unknown]
  - Subretinal fluid [Unknown]
  - Cough [Unknown]
  - Heart rate irregular [Recovering/Resolving]
  - Cataract nuclear [Not Recovered/Not Resolved]
  - Muscle spasms [Unknown]
  - Somnolence [Unknown]
  - Peripheral arterial occlusive disease [Not Recovered/Not Resolved]
  - Chest discomfort [Unknown]
  - Sinus headache [Unknown]
  - Vascular graft [Unknown]
  - Deafness [Recovering/Resolving]
  - Sinus disorder [Recovering/Resolving]
  - Macular degeneration [Unknown]
  - Therapeutic response decreased [Unknown]
  - Retinal degeneration [Unknown]
  - Retinal haemorrhage [Unknown]
  - Fatigue [Recovering/Resolving]
  - Diarrhoea [Recovering/Resolving]
  - Anxiety [Recovered/Resolved]
  - Macular oedema [Unknown]
  - Stress [Unknown]
  - Muscular weakness [Unknown]
  - Visual acuity reduced [Recovered/Resolved]
  - Weight decreased [Unknown]
  - Fear [Unknown]
  - Musculoskeletal stiffness [Not Recovered/Not Resolved]
  - Product use issue [Unknown]
  - Arthralgia [Unknown]
  - Choroidal neovascularisation [Unknown]
  - Dizziness [Unknown]
  - Stent placement [Unknown]
  - Depressed mood [Unknown]
  - Dry eye [Unknown]
  - Eye oedema [Not Recovered/Not Resolved]
  - Viral myositis [Unknown]
  - Polydipsia [Unknown]
  - Eye infection [Unknown]
  - Polyuria [Unknown]
  - Hypersensitivity [Unknown]
  - Influenza [Recovered/Resolved]
  - Visual impairment [Unknown]

NARRATIVE: CASE EVENT DATE: 20130316
